FAERS Safety Report 11927188 (Version 1)
Quarter: 2016Q1

REPORT INFORMATION
  Report Type: Spontaneous
  Country: US (occurrence: None)
  Receive Date: 20160115
  Receipt Date: 20160115
  Transmission Date: 20160526
  Serious: No
  Sender: FDA-Public Use
  Company Number: None

PATIENT
  Age: 39 Year
  Sex: Female

DRUGS (1)
  1. COPAXONE [Suspect]
     Active Substance: GLATIRAMER ACETATE
     Dosage: STRENGTH: 40

REACTIONS (4)
  - Palpitations [None]
  - Chills [None]
  - Pyrexia [None]
  - Flushing [None]

NARRATIVE: CASE EVENT DATE: 20150113
